FAERS Safety Report 9937164 (Version 2)
Quarter: 2014Q1

REPORT INFORMATION
  Report Type: Spontaneous
  Country: US (occurrence: US)
  Receive Date: 20140301
  Receipt Date: 20140301
  Transmission Date: 20141002
  Serious: Yes (Other)
  Sender: FDA-Public Use
  Company Number: US-GE HEALTHCARE MEDICAL DIAGNOSTICS-OSCN-PR-0805S-0269

PATIENT
  Age: 66 Year
  Sex: Male

DRUGS (7)
  1. OMNISCAN [Suspect]
     Indication: BACK PAIN
     Route: 042
     Dates: start: 20040529, end: 20040529
  2. OMNISCAN [Suspect]
     Indication: OSTEOPOROSIS
     Route: 042
     Dates: start: 20041230, end: 20041230
  3. OMNISCAN [Suspect]
     Indication: BACK PAIN
     Route: 042
     Dates: start: 20050120, end: 20050120
  4. OMNISCAN [Suspect]
     Route: 042
     Dates: start: 20050215, end: 20050215
  5. OMNISCAN [Suspect]
     Route: 042
     Dates: start: 20050419, end: 20050419
  6. ERYTHROPOIETIN [Concomitant]
     Dates: start: 19990301
  7. WARFARIN SODIUM [Concomitant]
     Dates: start: 20041229

REACTIONS (1)
  - Nephrogenic systemic fibrosis [Not Recovered/Not Resolved]
